FAERS Safety Report 24962535 (Version 2)
Quarter: 2025Q1

REPORT INFORMATION
  Report Type: Spontaneous
  Country: US (occurrence: US)
  Receive Date: 20250212
  Receipt Date: 20250307
  Transmission Date: 20250409
  Serious: No
  Sender: SANOFI AVENTIS
  Company Number: US-SA-2025SA041277

PATIENT
  Age: 68 Year
  Sex: Male
  Weight: 95.5 kg

DRUGS (1)
  1. KEVZARA [Suspect]
     Active Substance: SARILUMAB
     Indication: Polymyalgia rheumatica
     Dosage: 200 MG, QOW
     Route: 058
     Dates: start: 20241130

REACTIONS (3)
  - Arthralgia [Not Recovered/Not Resolved]
  - Pain [Unknown]
  - Musculoskeletal discomfort [Unknown]
